FAERS Safety Report 10359236 (Version 1)
Quarter: 2014Q3

REPORT INFORMATION
  Report Type: Spontaneous
  Country: US (occurrence: None)
  Receive Date: 20140731
  Receipt Date: 20140731
  Transmission Date: 20150326
  Serious: Yes (Hospitalization)
  Sender: FDA-Public Use
  Company Number: None

PATIENT
  Age: 82 Year
  Sex: Female
  Weight: 70 kg

DRUGS (1)
  1. ENOXAPARIN 80 MG SYRINGE WINTHROP PHARM [Suspect]
     Active Substance: ENOXAPARIN
     Indication: DEEP VEIN THROMBOSIS
     Route: 058
     Dates: start: 20140715, end: 20140717

REACTIONS (3)
  - Muscle haemorrhage [None]
  - Chest X-ray abnormal [None]
  - Haematocrit decreased [None]

NARRATIVE: CASE EVENT DATE: 20140717
